FAERS Safety Report 14074001 (Version 1)
Quarter: 2017Q4

REPORT INFORMATION
  Report Type: Spontaneous
  Country: US (occurrence: US)
  Receive Date: 20171010
  Receipt Date: 20171010
  Transmission Date: 20180321
  Serious: No
  Sender: FDA-Public Use
  Company Number: US-JNJFOC-20170923592

PATIENT
  Sex: Male

DRUGS (1)
  1. TYLENOL EXTRA STRENGTH [Suspect]
     Active Substance: ACETAMINOPHEN
     Indication: PAIN
     Route: 048

REACTIONS (6)
  - Feeling hot [Unknown]
  - Wheezing [Unknown]
  - Nasopharyngitis [Unknown]
  - Expired product administered [Unknown]
  - Malaise [Unknown]
  - Dyspnoea [Unknown]
